FAERS Safety Report 11973989 (Version 1)
Quarter: 2016Q1

REPORT INFORMATION
  Report Type: Report from Study
  Country: US (occurrence: US)
  Receive Date: 20160128
  Receipt Date: 20160128
  Transmission Date: 20160526
  Serious: No
  Sender: FDA-Public Use
  Company Number: US-ABBVIE-15K-163-1395680-00

PATIENT
  Age: 60 Year
  Sex: Female
  Weight: 77.18 kg

DRUGS (11)
  1. ZALEPLON. [Concomitant]
     Active Substance: ZALEPLON
     Indication: SLEEP DISORDER THERAPY
  2. DULOXETINE. [Concomitant]
     Active Substance: DULOXETINE
     Indication: DEPRESSION
  3. MYRBETRIQ [Concomitant]
     Active Substance: MIRABEGRON
     Indication: HYPERTONIC BLADDER
  4. SYNTHROID [Concomitant]
     Active Substance: LEVOTHYROXINE SODIUM
     Indication: HYPOTHYROIDISM
  5. HUMIRA [Suspect]
     Active Substance: ADALIMUMAB
     Indication: CROHN^S DISEASE
     Route: 058
  6. HUMIRA [Suspect]
     Active Substance: ADALIMUMAB
     Route: 058
  7. LORAZEPAM. [Concomitant]
     Active Substance: LORAZEPAM
     Indication: SLEEP DISORDER THERAPY
  8. CALCIUM [Concomitant]
     Active Substance: CALCIUM
     Indication: VITAMIN SUPPLEMENTATION
  9. MULTIVITAMIN [Concomitant]
     Active Substance: VITAMINS
     Indication: VITAMIN SUPPLEMENTATION
  10. MAGNESIUM [Concomitant]
     Active Substance: MAGNESIUM
     Indication: VITAMIN SUPPLEMENTATION
  11. MOBIC [Suspect]
     Active Substance: MELOXICAM
     Indication: ARTHRITIS
     Route: 065

REACTIONS (8)
  - Arthralgia [Recovered/Resolved]
  - Dry eye [Not Recovered/Not Resolved]
  - Blepharitis [Not Recovered/Not Resolved]
  - Rash [Recovered/Resolved]
  - Pain of skin [Recovered/Resolved]
  - Eye pain [Unknown]
  - Rhinitis allergic [Not Recovered/Not Resolved]
  - Pruritus [Recovered/Resolved]

NARRATIVE: CASE EVENT DATE: 2014
